FAERS Safety Report 26077762 (Version 1)
Quarter: 2025Q4

REPORT INFORMATION
  Report Type: Spontaneous
  Country: US (occurrence: US)
  Receive Date: 20251122
  Receipt Date: 20251122
  Transmission Date: 20260118
  Serious: No
  Sender: MDD OPERATIONS
  Company Number: US-MDD US Operations-MDD202508-003394

PATIENT
  Age: 66 Year
  Sex: Male
  Weight: 117.93 kg

DRUGS (5)
  1. ONAPGO [Suspect]
     Active Substance: APOMORPHINE HYDROCHLORIDE
     Indication: Parkinson^s disease
     Dosage: PER HOUR
     Dates: start: 20250806
  2. ONAPGO [Suspect]
     Active Substance: APOMORPHINE HYDROCHLORIDE
     Dosage: PER HOUR
     Dates: start: 202508
  3. ELIQUIS [Concomitant]
     Active Substance: APIXABAN
  4. GABAPENTIN [Concomitant]
     Active Substance: GABAPENTIN
     Dosage: TWICE A DAY
  5. SINEMET [Concomitant]
     Active Substance: CARBIDOPA\LEVODOPA
     Dosage: EACH DF OF 325/100MG 6 TIMES A DAY

REACTIONS (2)
  - Injection site erythema [Not Recovered/Not Resolved]
  - Injection site discharge [Not Recovered/Not Resolved]
